FAERS Safety Report 5592943-0 (Version None)
Quarter: 2008Q1

REPORT INFORMATION
  Report Type: 
  Country: None (occurrence: None)
  Receive Date: 20080116
  Receipt Date: 20080110
  Transmission Date: 20080703
  Serious: Yes (Other)
  Sender: FDA-Public Use
  Company Number: CA-JNJFOC-20071003868

PATIENT
  Age: 64 Year
  Sex: Male

DRUGS (7)
  1. REMICADE [Suspect]
     Route: 042
  2. REMICADE [Suspect]
     Indication: RHEUMATOID ARTHRITIS
     Route: 042
  3. MTX [Concomitant]
  4. PLAQUENIL [Concomitant]
  5. NOVASEN [Concomitant]
  6. LEUCOVORIN [Concomitant]
  7. CELEBREX [Concomitant]

REACTIONS (2)
  - HIP SURGERY [None]
  - PNEUMONIA [None]
